FAERS Safety Report 5444154-7 (Version None)
Quarter: 2007Q3

REPORT INFORMATION
  Report Type: 
  Country: None (occurrence: None)
  Receive Date: 20070906
  Receipt Date: 20070828
  Transmission Date: 20080115
  Serious: Yes (Other)
  Sender: FDA-Public Use
  Company Number: FR-RB-007865-07

PATIENT
  Age: 35 Year
  Sex: Female

DRUGS (4)
  1. SUBUTEX [Suspect]
     Indication: DRUG WITHDRAWAL MAINTENANCE THERAPY
     Dosage: FOR MORE THAN 10 YEARS.
     Route: 065
  2. STILNOX [Concomitant]
     Indication: DRUG USE FOR UNKNOWN INDICATION
     Dosage: DOSAGE UNKNOWN.
     Route: 065
  3. SERESTA [Concomitant]
     Indication: DRUG USE FOR UNKNOWN INDICATION
     Dosage: DOSAGE UNKNOWN.
     Route: 065
  4. DESLORATADINE [Concomitant]
     Indication: DRUG USE FOR UNKNOWN INDICATION
     Dosage: DOSAGE UNKNOWN.
     Route: 065

REACTIONS (2)
  - INTENTIONAL DRUG MISUSE [None]
  - SKIN NECROSIS [None]
